FAERS Safety Report 23260754 (Version 4)
Quarter: 2024Q1

REPORT INFORMATION
  Report Type: Report from Study
  Country: BR (occurrence: BR)
  Receive Date: 20231205
  Receipt Date: 20240102
  Transmission Date: 20240410
  Serious: Yes (Hospitalization, Other)
  Sender: FDA-Public Use
  Company Number: BR-BoehringerIngelheim-2023-BI-246671

PATIENT
  Age: 52 Year
  Sex: Female
  Weight: 50 kg

DRUGS (6)
  1. JARDIANCE [Suspect]
     Active Substance: EMPAGLIFLOZIN
     Indication: Diabetes mellitus
     Route: 048
     Dates: start: 2017
  2. JARDIANCE [Suspect]
     Active Substance: EMPAGLIFLOZIN
     Route: 048
  3. NORDETTE [Suspect]
     Active Substance: ETHINYL ESTRADIOL\LEVONORGESTREL
     Indication: Product used for unknown indication
  4. METFORMIN HYDROCHLORIDE [Concomitant]
     Active Substance: METFORMIN HYDROCHLORIDE
     Indication: Diabetes mellitus
     Dosage: 500 (DOSAGE NOT INFORMED), 2 TABLETS DAILY, ONE AFTER LUNCH AND AFTER DINNER.
  5. Vitamina D [Concomitant]
     Indication: Product used for unknown indication
  6. INSULIN NOS [Concomitant]
     Active Substance: INSULIN NOS
     Indication: Product used for unknown indication

REACTIONS (31)
  - Neoplasm malignant [Not Recovered/Not Resolved]
  - Immunodeficiency [Unknown]
  - Immunodeficiency [Unknown]
  - Diabetes mellitus inadequate control [Unknown]
  - Weight decreased [Unknown]
  - Drug ineffective [Unknown]
  - Glucose urine present [Unknown]
  - Fructose increased [Unknown]
  - Leiomyoma [Unknown]
  - Gastric ulcer [Unknown]
  - Scar [Unknown]
  - Insulin resistance [Unknown]
  - Product administration error [Recovered/Resolved]
  - Ill-defined disorder [Unknown]
  - Blood glucose abnormal [Unknown]
  - Anaemia [Unknown]
  - Visual impairment [Unknown]
  - Iron deficiency anaemia [Unknown]
  - Malaise [Unknown]
  - Burning sensation [Unknown]
  - Oliguria [Unknown]
  - Urine abnormality [Unknown]
  - Therapeutic product effect decreased [Unknown]
  - Blood glucose increased [Unknown]
  - Drug intolerance [Unknown]
  - Maternal exposure during pregnancy [Unknown]
  - Haemorrhoids [Unknown]
  - Blood glucose abnormal [Unknown]
  - Gene mutation [Unknown]
  - Blood glucose increased [Unknown]
  - Renal disorder [Unknown]

NARRATIVE: CASE EVENT DATE: 20170101
